FAERS Safety Report 10700732 (Version 2)
Quarter: 2015Q1

REPORT INFORMATION
  Report Type: Spontaneous
  Country: US (occurrence: US)
  Receive Date: 20150109
  Receipt Date: 20150109
  Transmission Date: 20150721
  Serious: Yes (Other)
  Sender: FDA-Public Use
  Company Number: US-CELGENE-163-21660-13115923

PATIENT

DRUGS (1)
  1. ABRAXANE [Suspect]
     Active Substance: PACLITAXEL
     Indication: BREAST CANCER METASTATIC
     Dosage: 100 MILLIGRAM/SQ. METER
     Route: 041

REACTIONS (16)
  - Hyponatraemia [Unknown]
  - Hypophosphataemia [Unknown]
  - Peripheral sensory neuropathy [Unknown]
  - Vomiting [Unknown]
  - Lymphopenia [Unknown]
  - Toxicity to various agents [Unknown]
  - Fatigue [Unknown]
  - Constipation [Unknown]
  - Neutrophil count decreased [Unknown]
  - Nausea [Unknown]
  - Infection [Unknown]
  - Aspartate aminotransferase abnormal [Unknown]
  - Breast cancer metastatic [Unknown]
  - Diarrhoea [Unknown]
  - Haemoglobin decreased [Unknown]
  - White blood cell count decreased [Unknown]
